FAERS Safety Report 13617881 (Version 2)
Quarter: 2017Q2

REPORT INFORMATION
  Report Type: Spontaneous
  Country: US (occurrence: US)
  Receive Date: 20170606
  Receipt Date: 20170612
  Transmission Date: 20170830
  Serious: No
  Sender: FDA-Public Use
  Company Number: US-009507513-1705USA009662

PATIENT
  Age: 24 Year
  Sex: Female
  Weight: 45.35 kg

DRUGS (2)
  1. NEXPLANON [Suspect]
     Active Substance: ETONOGESTREL
     Indication: MENSTRUAL CYCLE MANAGEMENT
     Dosage: 3 YEAR IMPLANT
  2. NEXPLANON [Suspect]
     Active Substance: ETONOGESTREL
     Indication: ROUTINE HEALTH MAINTENANCE

REACTIONS (4)
  - Malaise [Unknown]
  - Spinal pain [Unknown]
  - Hypoaesthesia [Unknown]
  - Paraesthesia [Unknown]
